FAERS Safety Report 7019065-6 (Version None)
Quarter: 2010Q3

REPORT INFORMATION
  Report Type: 
  Country: None (occurrence: None)
  Receive Date: 20100928
  Receipt Date: 20100920
  Transmission Date: 20110219
  Serious: Yes (Other)
  Sender: FDA-Public Use
  Company Number: A0882092A

PATIENT
  Age: 20 Year
  Sex: Female

DRUGS (3)
  1. LAMICTAL [Suspect]
     Route: 048
     Dates: start: 20060101
  2. PAXIL [Concomitant]
  3. CLONAZEPAM [Concomitant]

REACTIONS (2)
  - GRAND MAL CONVULSION [None]
  - MYOCLONIC EPILEPSY [None]
